FAERS Safety Report 20000307 (Version 2)
Quarter: 2021Q4

REPORT INFORMATION
  Report Type: Report from Study
  Country: DE (occurrence: DE)
  Receive Date: 20211026
  Receipt Date: 20211102
  Transmission Date: 20220303
  Serious: Yes (Other)
  Sender: FDA-Public Use
  Company Number: DE-TAKEDA-2021TUS065234

PATIENT
  Age: 70 Year
  Sex: Male

DRUGS (34)
  1. ANTIHEMOPHILIC FACTOR PORCINE, B-DOMAIN TRUNCATED RECOMBINANT [Suspect]
     Active Substance: ANTIHEMOPHILIC FACTOR PORCINE, B-DOMAIN TRUNCATED RECOMBINANT
     Indication: Product used for unknown indication
     Dosage: UNK
     Route: 065
     Dates: start: 20181211
  2. ANTIHEMOPHILIC FACTOR PORCINE, B-DOMAIN TRUNCATED RECOMBINANT [Suspect]
     Active Substance: ANTIHEMOPHILIC FACTOR PORCINE, B-DOMAIN TRUNCATED RECOMBINANT
     Indication: Product used for unknown indication
     Dosage: UNK
     Route: 065
     Dates: start: 20181211
  3. ANTIHEMOPHILIC FACTOR PORCINE, B-DOMAIN TRUNCATED RECOMBINANT [Suspect]
     Active Substance: ANTIHEMOPHILIC FACTOR PORCINE, B-DOMAIN TRUNCATED RECOMBINANT
     Dosage: 26 INTERNATIONAL UNIT/KILOGRAM
     Route: 065
     Dates: start: 20181219
  4. ANTIHEMOPHILIC FACTOR PORCINE, B-DOMAIN TRUNCATED RECOMBINANT [Suspect]
     Active Substance: ANTIHEMOPHILIC FACTOR PORCINE, B-DOMAIN TRUNCATED RECOMBINANT
     Dosage: 26 INTERNATIONAL UNIT/KILOGRAM
     Route: 065
     Dates: start: 20181219
  5. TRANEXAMIC ACID [Concomitant]
     Active Substance: TRANEXAMIC ACID
     Indication: Haemophilia
     Dosage: 500 MILLIGRAM, BID
     Route: 048
     Dates: start: 20181211, end: 20190202
  6. ASPIRIN [Concomitant]
     Active Substance: ASPIRIN
     Indication: Coronary artery disease
     Dosage: 100 MILLIGRAM, QD
     Route: 048
     Dates: start: 2004, end: 20181211
  7. SIMVASTATIN [Concomitant]
     Active Substance: SIMVASTATIN
     Indication: Coronary artery disease
     Dosage: 40 MILLIGRAM, QD
     Route: 048
     Dates: end: 20181112
  8. METOPROLOL [Concomitant]
     Active Substance: METOPROLOL
     Indication: Coronary artery disease
     Dosage: 95 MILLIGRAM, QD
     Route: 048
  9. RAMIPRIL [Concomitant]
     Active Substance: RAMIPRIL
     Indication: Hypertension
     Dosage: 10 MILLIGRAM, QD
     Route: 048
     Dates: end: 20181212
  10. RAMIPRIL [Concomitant]
     Active Substance: RAMIPRIL
     Indication: Cardiac failure
  11. TIOTROPIUM [Concomitant]
     Active Substance: TIOTROPIUM
     Indication: Chronic obstructive pulmonary disease
     Dosage: UNK UNK, QD
     Route: 055
  12. TORSEMIDE [Concomitant]
     Active Substance: TORSEMIDE
     Indication: Cardiac failure
     Dosage: 100 MILLIGRAM, QD
     Route: 048
     Dates: start: 20181213, end: 20181217
  13. TORSEMIDE [Concomitant]
     Active Substance: TORSEMIDE
     Dosage: 40 MILLIGRAM, BID
     Route: 048
     Dates: start: 20181219
  14. TORSEMIDE [Concomitant]
     Active Substance: TORSEMIDE
     Dosage: 20 MILLIGRAM, BID
     Route: 048
     Dates: start: 20181219
  15. Tram dol [Concomitant]
     Indication: Back pain
     Dosage: 100 MILLIGRAM, BID
     Route: 048
     Dates: start: 20181212, end: 20181221
  16. Tram dol [Concomitant]
     Dosage: 50 MILLIGRAM, BID
     Route: 048
     Dates: start: 20181212, end: 20181221
  17. Tram dol [Concomitant]
     Dosage: 50 MILLIGRAM, QID
     Route: 048
     Dates: start: 20181212
  18. METAMIZOL [Concomitant]
     Active Substance: METAMIZOLE SODIUM
     Indication: Back pain
     Dosage: 500 MILLIGRAM, QID
     Route: 048
     Dates: start: 20181212
  19. CHOLECALCIFEROL [Concomitant]
     Active Substance: CHOLECALCIFEROL
     Indication: Renal failure
     Dosage: 100 INTERNATIONAL UNIT, QD
     Route: 048
     Dates: start: 20181212
  20. PANTOPRAZOLE SODIUM [Concomitant]
     Active Substance: PANTOPRAZOLE SODIUM
     Indication: Gastrointestinal ulcer
     Dosage: 40 MILLIGRAM, QD
     Route: 048
     Dates: start: 20181213
  21. SODIUM BICARBONATE [Concomitant]
     Active Substance: SODIUM BICARBONATE
     Indication: Renal failure
     Dosage: UNK UNK, QD
     Route: 048
     Dates: start: 20181213
  22. ISOSORBI DINIT [Concomitant]
     Indication: Coronary artery disease
     Dosage: 40 MILLIGRAM, QD
     Route: 048
     Dates: start: 20181213
  23. MOLSIDOMINE [Concomitant]
     Active Substance: MOLSIDOMINE
     Indication: Coronary artery disease
     Dosage: 8 MILLIGRAM, QD
     Route: 048
     Dates: start: 20181212
  24. FELODIPINE [Concomitant]
     Active Substance: FELODIPINE
     Indication: Hypertension
     Dosage: 5 MILLIGRAM, QD
     Route: 048
     Dates: start: 20181213
  25. INSULIN GLARGINE [Concomitant]
     Active Substance: INSULIN GLARGINE
     Indication: Diabetes mellitus
     Dosage: 12 INTERNATIONAL UNIT, PRN
     Route: 058
  26. INSULIN GLARGINE [Concomitant]
     Active Substance: INSULIN GLARGINE
     Dosage: 6 INTERNATIONAL UNIT, QD
     Route: 058
  27. PREDNISOLONE [Concomitant]
     Active Substance: PREDNISOLONE
     Indication: Factor VIII deficiency
     Dosage: 100 MILLIGRAM, QD
     Route: 048
     Dates: start: 20181213, end: 20181221
  28. PREDNISOLONE [Concomitant]
     Active Substance: PREDNISOLONE
     Dosage: 50 MILLIGRAM, QD
     Route: 048
     Dates: start: 20181222, end: 20190106
  29. PREDNISOLONE [Concomitant]
     Active Substance: PREDNISOLONE
     Dosage: 40 MILLIGRAM, QD
     Route: 048
     Dates: start: 20190107, end: 20190413
  30. PREDNISOLONE [Concomitant]
     Active Substance: PREDNISOLONE
     Dosage: 30 MILLIGRAM, QD
     Route: 048
     Dates: start: 20190114
  31. METRONIDAZOLE [Concomitant]
     Active Substance: METRONIDAZOLE
     Indication: Clostridium difficile infection
     Dosage: 400 MILLIGRAM, TID
     Route: 048
     Dates: start: 20181222, end: 20181231
  32. POTASSIUM CITRATE [Concomitant]
     Active Substance: POTASSIUM CITRATE
     Indication: Hypokalaemia
     Dosage: 10 MICROGRAM, BID
     Route: 048
     Dates: start: 20181219, end: 20181219
  33. POTASSIUM CITRATE [Concomitant]
     Active Substance: POTASSIUM CITRATE
     Dosage: 10 MICROGRAM, QD
     Route: 048
     Dates: start: 20181220, end: 20181220
  34. POTASSIUM CITRATE [Concomitant]
     Active Substance: POTASSIUM CITRATE
     Dosage: 5 MICROGRAM, QD
     Route: 048
     Dates: start: 20181222, end: 20181222

REACTIONS (2)
  - Clostridium difficile infection [Recovered/Resolved]
  - Hypokalaemia [Recovered/Resolved]

NARRATIVE: CASE EVENT DATE: 20181219
